FAERS Safety Report 13524273 (Version 1)
Quarter: 2017Q2

REPORT INFORMATION
  Report Type: Spontaneous
  Country: JP (occurrence: JP)
  Receive Date: 20170508
  Receipt Date: 20170508
  Transmission Date: 20170830
  Serious: Yes (Other)
  Sender: FDA-Public Use
  Company Number: JP-MEDA-2017040054

PATIENT
  Age: 75 Year
  Sex: Male

DRUGS (3)
  1. INSULIN [Concomitant]
     Active Substance: INSULIN NOS
  2. APIXABAN [Concomitant]
     Active Substance: APIXABAN
  3. POLYETHYLENE GLYCOL [Suspect]
     Active Substance: POLYETHYLENE GLYCOLS
     Indication: BOWEL PREPARATION
     Dosage: 3 LITERS

REACTIONS (3)
  - Procalcitonin increased [Unknown]
  - Citrobacter infection [Recovered/Resolved]
  - Septic shock [Recovered/Resolved]
